FAERS Safety Report 9710072 (Version 2)
Quarter: 2013Q4

REPORT INFORMATION
  Report Type: Report from Study
  Country: DE (occurrence: DE)
  Receive Date: 20131126
  Receipt Date: 20131126
  Transmission Date: 20140711
  Serious: Yes (Hospitalization, Other)
  Sender: FDA-Public Use
  Company Number: DE-MPIJNJ-2012-05147

PATIENT
  Sex: 0

DRUGS (3)
  1. VELCADE [Suspect]
     Indication: PLASMA CELL MYELOMA
     Dosage: 2.1 MG, UNK
     Route: 065
     Dates: start: 20110912, end: 20120717
  2. VELCADE [Suspect]
     Dosage: UNK
     Dates: start: 20120831
  3. LENALIDOMIDE [Suspect]
     Indication: PLASMA CELL MYELOMA
     Dosage: 15 MG/DL, UNK
     Route: 065
     Dates: start: 20120430, end: 20120625

REACTIONS (2)
  - Hepatic failure [Not Recovered/Not Resolved]
  - Hepatitis B [Recovered/Resolved]
